FAERS Safety Report 6450776-7 (Version None)
Quarter: 2009Q4

REPORT INFORMATION
  Report Type: 
  Country: None (occurrence: None)
  Receive Date: 20091123
  Receipt Date: 20091113
  Transmission Date: 20100525
  Serious: Yes (Other)
  Sender: FDA-Public Use
  Company Number: US-BAXTER-2009BH017570

PATIENT
  Sex: Female

DRUGS (6)
  1. VINORELBINE TARTRATE [Suspect]
     Indication: BREAST CANCER
     Route: 042
  2. DOCETAXEL [Suspect]
     Indication: BREAST CANCER
     Route: 042
  3. TRASTUZUMAB [Suspect]
     Indication: BREAST CANCER
     Route: 042
  4. TRASTUZUMAB [Suspect]
     Route: 042
  5. ANTIEMETIC PROPHYLAXIS [Concomitant]
     Indication: DRUG USE FOR UNKNOWN INDICATION
     Route: 065
  6. DEXAMETHASONE [Concomitant]
     Indication: DRUG USE FOR UNKNOWN INDICATION
     Route: 048

REACTIONS (1)
  - RESPIRATORY DISTRESS [None]
